FAERS Safety Report 9434158 (Version 1)
Quarter: 2013Q3

REPORT INFORMATION
  Report Type: Report from Study
  Country: US (occurrence: US)
  Receive Date: 20130801
  Receipt Date: 20130801
  Transmission Date: 20140515
  Serious: Yes (Hospitalization)
  Sender: FDA-Public Use
  Company Number: US-MERCK-1307USA015290

PATIENT
  Sex: Male

DRUGS (8)
  1. DEXAMETHASONE [Suspect]
     Dosage: 2 MG, DAILY FOR 2 DAYS THEN 2MG ORALLY EVERY OTHER DAY X 2DAYS THEN STOP
     Route: 048
     Dates: start: 20121103
  2. DEXAMETHASONE [Suspect]
     Dosage: 2 MG, QD
     Route: 048
  3. PROTONIX [Suspect]
     Dosage: 20 MG, QD
     Route: 048
  4. ABIRATERONE ACETATE [Suspect]
     Dosage: 1 G, QD
     Route: 048
     Dates: start: 20120720
  5. DOCUSATE SODIUM [Suspect]
     Dosage: 100 MG, BID
     Route: 048
  6. SENOKOT S [Suspect]
     Dosage: 3 DF, BID
     Route: 048
  7. METHADONE HCL [Suspect]
     Dosage: 25 MG, TID
     Route: 048
  8. NYSTATIN [Suspect]
     Dosage: DOSE: 500,000 IU,SWISH AND SPIT FOUR TIMES A DAY

REACTIONS (1)
  - Muscular weakness [Unknown]
